FAERS Safety Report 14740276 (Version 1)
Quarter: 2018Q2

REPORT INFORMATION
  Report Type: Spontaneous
  Country: DE (occurrence: DE)
  Receive Date: 20180410
  Receipt Date: 20180410
  Transmission Date: 20180711
  Serious: Yes (Other)
  Sender: FDA-Public Use
  Company Number: PHHY2016DE185766

PATIENT
  Age: 71 Year
  Sex: Male
  Weight: 87 kg

DRUGS (27)
  1. 5-FLUOROURACIL [Suspect]
     Active Substance: FLUOROURACIL
     Dosage: 600 MG, BIW
     Route: 040
     Dates: start: 20160411, end: 20160411
  2. 5-FLUOROURACIL [Suspect]
     Active Substance: FLUOROURACIL
     Dosage: 600 MG, BIW
     Route: 040
     Dates: start: 20160425, end: 20160425
  3. OXALIPLATIN. [Suspect]
     Active Substance: OXALIPLATIN
     Indication: PRODUCT USED FOR UNKNOWN INDICATION
     Dosage: UNK MG, BIW
     Route: 065
  4. IRINOTECAN [Suspect]
     Active Substance: IRINOTECAN
     Dosage: 270 MG, BIW
     Route: 042
     Dates: start: 20160411, end: 20160411
  5. IRINOTECAN [Suspect]
     Active Substance: IRINOTECAN
     Dosage: 275 MG, BIW
     Route: 042
     Dates: start: 20160711
  6. 5-FLUOROURACIL [Suspect]
     Active Substance: FLUOROURACIL
     Dosage: 606 MG, BIW
     Route: 040
     Dates: start: 20160314, end: 20160314
  7. 5-FLUOROURACIL [Suspect]
     Active Substance: FLUOROURACIL
     Dosage: 606 MG, BIW
     Route: 040
     Dates: start: 20160613, end: 20160613
  8. FOLINIC ACID [Suspect]
     Active Substance: LEUCOVORIN
     Indication: PRODUCT USED FOR UNKNOWN INDICATION
     Dosage: UNK MG, QW
     Route: 065
  9. AVASTIN [Suspect]
     Active Substance: BEVACIZUMAB
     Dosage: 420 MG, BIW
     Route: 042
     Dates: start: 20160615, end: 20160615
  10. 5-FLUOROURACIL [Suspect]
     Active Substance: FLUOROURACIL
     Dosage: 606 MG, BIW
     Route: 041
     Dates: start: 20160430, end: 20160430
  11. IRINOTECAN [Suspect]
     Active Substance: IRINOTECAN
     Indication: COLORECTAL CANCER
     Dosage: 272 MG, BIW
     Route: 042
     Dates: start: 20160208, end: 20160208
  12. IRINOTECAN [Suspect]
     Active Substance: IRINOTECAN
     Dosage: 272 MG, BIW
     Route: 042
     Dates: start: 20160330, end: 20160330
  13. IRINOTECAN [Suspect]
     Active Substance: IRINOTECAN
     Dosage: 272 MG, BIW
     Route: 042
     Dates: start: 20160314, end: 20160314
  14. IRINOTECAN [Suspect]
     Active Substance: IRINOTECAN
     Dosage: 270 MG, BIW
     Route: 042
  15. FOLINIC ACID [Suspect]
     Active Substance: LEUCOVORIN
     Dosage: 606 MG, QW
     Route: 042
     Dates: start: 20160627, end: 20160627
  16. FOLINIC ACID [Suspect]
     Active Substance: LEUCOVORIN
     Dosage: 612 MG, QW
     Route: 042
     Dates: start: 20160711, end: 20160711
  17. IRINOTECAN [Suspect]
     Active Substance: IRINOTECAN
     Dosage: 363 MG, BIW
     Route: 042
     Dates: start: 20160222, end: 20160222
  18. AVASTIN [Suspect]
     Active Substance: BEVACIZUMAB
     Indication: COLORECTAL CANCER
     Dosage: 420 MG, BIW
     Route: 042
     Dates: start: 20160224
  19. VALSARTAN. [Concomitant]
     Active Substance: VALSARTAN
     Indication: HYPERTENSION
     Dosage: 80 MG, QD
     Route: 048
  20. IRINOTECAN [Suspect]
     Active Substance: IRINOTECAN
     Dosage: 270 MG, BIW
     Route: 042
     Dates: start: 20160425, end: 20160425
  21. IRINOTECAN [Suspect]
     Active Substance: IRINOTECAN
     Dosage: 272 MG, BIW
     Route: 042
     Dates: start: 20160613, end: 20160613
  22. 5-FLUOROURACIL [Suspect]
     Active Substance: FLUOROURACIL
     Indication: COLORECTAL CANCER
     Dosage: 1 DF, QW (DOSAGES BETWEEN 600 MG AND 800 MG)
     Route: 040
     Dates: start: 20160208, end: 20160208
  23. 5-FLUOROURACIL [Suspect]
     Active Substance: FLUOROURACIL
     Dosage: 606 MG, BIW
     Route: 040
     Dates: start: 20160627, end: 20160627
  24. 5-FLUOROURACIL [Suspect]
     Active Substance: FLUOROURACIL
     Dosage: 612 MG, BIW
     Route: 040
     Dates: start: 20160711
  25. FOLINIC ACID [Suspect]
     Active Substance: LEUCOVORIN
     Dosage: 606 MG, QW
     Route: 042
     Dates: start: 20160613, end: 20160613
  26. IRINOTECAN [Suspect]
     Active Substance: IRINOTECAN
     Dosage: 272 MG, BIW
     Route: 042
     Dates: start: 20160627, end: 20160627
  27. 5-FLUOROURACIL [Suspect]
     Active Substance: FLUOROURACIL
     Dosage: 808 MG, BIW
     Route: 040
     Dates: start: 20160222

REACTIONS (4)
  - Neutropenia [Recovered/Resolved]
  - Epistaxis [Recovered/Resolved]
  - Off label use [Unknown]
  - Inappropriate schedule of drug administration [Unknown]

NARRATIVE: CASE EVENT DATE: 20160307
